FAERS Safety Report 4895648-4 (Version None)
Quarter: 2006Q1

REPORT INFORMATION
  Report Type: 
  Country: None (occurrence: None)
  Receive Date: 20060125
  Receipt Date: 20060113
  Transmission Date: 20060701
  Serious: Yes (Hospitalization, Other)
  Sender: FDA-Public Use
  Company Number: KII-2006-0020688

PATIENT
  Age: 62 Year
  Sex: Male

DRUGS (1)
  1. MORPHINE SULFATE [Suspect]
     Indication: ANGIOPLASTY
     Dosage: ORAL
     Route: 048
     Dates: start: 20051219, end: 20051219

REACTIONS (12)
  - ABNORMAL BEHAVIOUR [None]
  - AGITATION [None]
  - CEREBELLAR INFARCTION [None]
  - CONFUSIONAL STATE [None]
  - HEART RATE INCREASED [None]
  - HYPOXIA [None]
  - MENTAL STATUS CHANGES [None]
  - OXYGEN SATURATION DECREASED [None]
  - PULMONARY EMBOLISM [None]
  - RESPIRATORY RATE INCREASED [None]
  - RESTLESSNESS [None]
  - THALAMIC INFARCTION [None]
